FAERS Safety Report 4283390-2 (Version None)
Quarter: 2004Q1

REPORT INFORMATION
  Report Type: 
  Country: None (occurrence: None)
  Receive Date: 20040115
  Receipt Date: 20030822
  Transmission Date: 20041129
  Serious: Yes (Death)
  Sender: FDA-Public Use
  Company Number: US-JNJFOC-20030804861

PATIENT
  Age: 81 Year
  Sex: Female

DRUGS (1)
  1. DOXIL [Suspect]
     Indication: OVARIAN CANCER
     Dosage: 60 MG, 1 IN 4 WEEK, INTRAVENOUS
     Route: 042
     Dates: start: 20030501, end: 20030804

REACTIONS (1)
  - DISEASE PROGRESSION [None]
